FAERS Safety Report 5142712-0 (Version None)
Quarter: 2006Q4

REPORT INFORMATION
  Report Type: 
  Country: None (occurrence: None)
  Receive Date: 20061027
  Receipt Date: 20061016
  Transmission Date: 20070319
  Serious: Yes (Hospitalization, Other)
  Sender: FDA-Public Use
  Company Number: US200608002537

PATIENT
  Age: 38 Year
  Sex: Male
  Weight: 72.6 kg

DRUGS (3)
  1. ZYPREXA [Suspect]
     Indication: DEPRESSION
     Dates: start: 20040501
  2. QUETIAPINE FUMARATE [Concomitant]
  3. MIRTAZAPINE [Concomitant]

REACTIONS (8)
  - BLOOD CHOLESTEROL ABNORMAL [None]
  - BLOOD TRIGLYCERIDES INCREASED [None]
  - DIABETES MELLITUS [None]
  - DIABETIC COMA [None]
  - HEPATITIS VIRAL [None]
  - HYPERTENSION [None]
  - PANCREATITIS [None]
  - VISION BLURRED [None]
